FAERS Safety Report 5815018-1 (Version None)
Quarter: 2008Q3

REPORT INFORMATION
  Report Type: 
  Country: None (occurrence: None)
  Receive Date: 20080718
  Receipt Date: 20080711
  Transmission Date: 20090109
  Serious: Yes (Other)
  Sender: FDA-Public Use
  Company Number: B0518250A

PATIENT
  Age: 67 Year
  Sex: Male

DRUGS (6)
  1. PAXIL [Suspect]
     Indication: DEPRESSION
     Route: 048
     Dates: end: 20080512
  2. WYPAX [Suspect]
     Indication: ANXIETY
     Dosage: 1MG PER DAY
     Route: 048
  3. SILECE [Suspect]
     Indication: INSOMNIA
     Dosage: 4MG PER DAY
     Route: 065
  4. HIRNAMIN [Suspect]
     Indication: INSOMNIA
     Dosage: 50MG PER DAY
     Route: 065
  5. ALPRAZOLAM [Suspect]
     Indication: ANXIETY
     Dosage: .4MG THREE TIMES PER DAY
     Route: 048
  6. MIKELAN [Suspect]
     Dosage: 5MG TWICE PER DAY
     Route: 065

REACTIONS (3)
  - BREAST INDURATION [None]
  - BREAST PAIN [None]
  - HYPERPROLACTINAEMIA [None]
